FAERS Safety Report 10946755 (Version 2)
Quarter: 2015Q2

REPORT INFORMATION
  Report Type: Report from Study
  Country: US (occurrence: US)
  Receive Date: 20150323
  Receipt Date: 20150421
  Transmission Date: 20150821
  Serious: No
  Sender: FDA-Public Use
  Company Number: US-VERTEX PHARMACEUTICALS-2015-000811

PATIENT
  Age: 37 Year
  Sex: Female

DRUGS (1)
  1. KALYDECO [Suspect]
     Active Substance: IVACAFTOR
     Indication: CYSTIC FIBROSIS
     Dosage: UNK
     Route: 048
     Dates: start: 20150314, end: 20150409

REACTIONS (3)
  - Oropharyngeal pain [Unknown]
  - Drug dose omission [Unknown]
  - Nasal congestion [Unknown]

NARRATIVE: CASE EVENT DATE: 201503
